FAERS Safety Report 10579076 (Version 1)
Quarter: 2014Q4

REPORT INFORMATION
  Report Type: Report from Study
  Country: AU (occurrence: AU)
  Receive Date: 20141112
  Receipt Date: 20141112
  Transmission Date: 20150529
  Serious: Yes (Hospitalization)
  Sender: FDA-Public Use
  Company Number: AU-B.I. PHARMACEUTICALS,INC./RIDGEFIELD-2014-BI-52956BI

PATIENT
  Age: 73 Year
  Sex: Male
  Weight: 94.6 kg

DRUGS (24)
  1. PANADOL [Concomitant]
     Active Substance: ACETAMINOPHEN
     Indication: OSTEOARTHRITIS
     Dosage: 6 ANZ
     Route: 048
     Dates: start: 2011
  2. TRAMADOL [Concomitant]
     Active Substance: TRAMADOL
     Indication: CHEST PAIN
     Dosage: 3 ANZ
     Route: 048
     Dates: start: 20140923
  3. METOCLOPRAMIDE. [Concomitant]
     Active Substance: METOCLOPRAMIDE
     Indication: ANTIEMETIC SUPPORTIVE CARE
     Route: 048
     Dates: start: 20140927
  4. FOLATE [Concomitant]
     Active Substance: FOLATE SODIUM
     Indication: PROPHYLAXIS
     Dosage: 500 MG
     Route: 048
     Dates: start: 20140805
  5. LOPERAMIDE HCL [Concomitant]
     Active Substance: LOPERAMIDE HYDROCHLORIDE
     Indication: DIARRHOEA
     Route: 048
     Dates: start: 20141005
  6. BIBF 1120 [Suspect]
     Active Substance: NINTEDANIB
     Indication: MESOTHELIOMA
     Dosage: 100 MG
     Route: 048
     Dates: start: 20140924
  7. CISPLATIN. [Suspect]
     Active Substance: CISPLATIN
     Indication: MESOTHELIOMA
     Dosage: FORMULATION: IV CHEMOTHERAPY,  DAILY DOSE: 165 MG Q3/52
     Route: 042
     Dates: start: 20141014, end: 20141014
  8. ATACAND [Concomitant]
     Active Substance: CANDESARTAN CILEXETIL
     Indication: HYPERTENSION
     Dosage: 32 MG
     Route: 048
     Dates: start: 201308
  9. CALTRATE PLUS VITAMIN D [Concomitant]
     Indication: SUPPLEMENTATION THERAPY
     Dosage: 2 ANZ
     Route: 048
     Dates: start: 2013
  10. BIBF 1120 [Suspect]
     Active Substance: NINTEDANIB
     Dosage: 100 MG
     Route: 048
     Dates: start: 20141031
  11. MINIPRESS [Concomitant]
     Active Substance: PRAZOSIN HYDROCHLORIDE
     Indication: HYPERTENSION
     Dosage: 1 ANZ
     Route: 048
     Dates: start: 2004
  12. SIMVASTATIN. [Concomitant]
     Active Substance: SIMVASTATIN
     Indication: HYPERCHOLESTEROLAEMIA
     Dosage: 40 MG
     Route: 048
     Dates: start: 1984
  13. VENTOLIN [Concomitant]
     Active Substance: ALBUTEROL SULFATE
     Indication: COUGH
     Dosage: FORMULATION: INHALER, STRENGTH:100 MCG
     Route: 048
     Dates: start: 2009
  14. DIABEX [Concomitant]
     Active Substance: METFORMIN HYDROCHLORIDE
     Indication: TYPE 2 DIABETES MELLITUS
     Dosage: 2000 MG
     Route: 048
     Dates: start: 2004
  15. ULTRA GLUCOSAMINE PLUS [Concomitant]
     Indication: OSTEOARTHRITIS
     Dosage: 1500 MG
     Route: 048
     Dates: start: 2004
  16. SITAGLIPTIN [Concomitant]
     Active Substance: SITAGLIPTIN
     Indication: TYPE 2 DIABETES MELLITUS
     Dosage: 100 MG
     Route: 048
     Dates: start: 20140701
  17. ASPIRIN. [Concomitant]
     Active Substance: ASPIRIN
     Indication: PROPHYLAXIS
     Dosage: 0.5 ANZ
     Route: 048
     Dates: start: 2004
  18. SOMAC [Concomitant]
     Active Substance: PANTOPRAZOLE SODIUM
     Indication: GASTROOESOPHAGEAL REFLUX DISEASE
     Dosage: 40 MG
     Route: 048
     Dates: start: 2012
  19. TEMAZEPAN [Concomitant]
     Indication: NIGHT SWEATS
     Route: 048
     Dates: start: 20140812
  20. PEMETREXED [Suspect]
     Active Substance: PEMETREXED
     Indication: MESOTHELIOMA
     Dosage: FORMULATION: IV CHEMOTHERAPY,  DAILY DOSE: 1100 MG Q3/52
     Route: 042
     Dates: start: 20141014, end: 20141014
  21. EZETROL [Concomitant]
     Active Substance: EZETIMIBE
     Indication: HYPERTENSION
     Dosage: 10 MG
     Route: 048
     Dates: start: 2004
  22. BIO ZINC [Concomitant]
     Indication: SUPPLEMENTATION THERAPY
     Dosage: 1 ANZ
     Route: 048
     Dates: start: 20140819
  23. OXYCODONE [Concomitant]
     Active Substance: OXYCODONE
     Indication: CHEST PAIN
     Route: 048
     Dates: start: 20140819
  24. MAGNESIUM [Concomitant]
     Active Substance: MAGNESIUM
     Indication: HYPOMAGNESAEMIA
     Dosage: 500 MG
     Route: 048
     Dates: start: 20140903

REACTIONS (1)
  - Angina unstable [Recovered/Resolved]

NARRATIVE: CASE EVENT DATE: 20141031
